FAERS Safety Report 9794629 (Version 1)
Quarter: 2014Q1

REPORT INFORMATION
  Report Type: Spontaneous
  Country: GB (occurrence: GB)
  Receive Date: 20140102
  Receipt Date: 20140102
  Transmission Date: 20141002
  Serious: Yes (Hospitalization)
  Sender: FDA-Public Use
  Company Number: GB-ACTAVIS-2013-23719

PATIENT
  Age: 85 Year
  Sex: 0

DRUGS (16)
  1. AMOXICILLIN (UNKNOWN) [Suspect]
     Indication: PRODUCT USED FOR UNKNOWN INDICATION
     Dosage: STAT DOSE
     Route: 065
     Dates: start: 20111128, end: 20111128
  2. CLARITHROMYCIN (UNKNOWN) [Suspect]
     Indication: PRODUCT USED FOR UNKNOWN INDICATION
     Dosage: STAT DOSE
     Dates: start: 20111128, end: 20111128
  3. GENTAMICIN (UNKNOWN) [Suspect]
     Indication: PRODUCT USED FOR UNKNOWN INDICATION
     Dosage: 320 MG, UNK, STAT
     Route: 042
     Dates: start: 20111128, end: 20111128
  4. CEFALEXIN (UNKNOWN) [Suspect]
     Indication: PRODUCT USED FOR UNKNOWN INDICATION
     Dosage: 500 MG, QID
     Route: 048
     Dates: start: 20110622, end: 20110629
  5. CEFALEXIN (UNKNOWN) [Suspect]
     Dosage: 250 MG, QPM
     Route: 048
  6. NITROFURANTOIN (UNKNOWN) [Suspect]
     Indication: PRODUCT USED FOR UNKNOWN INDICATION
     Dosage: 100 MG, BID
     Route: 048
     Dates: start: 20110929, end: 20111006
  7. CIPROFLOXACIN HYDROCHLORIDE (UNKNOWN) [Suspect]
     Indication: PRODUCT USED FOR UNKNOWN INDICATION
     Dosage: 250 MG, BID
     Route: 048
     Dates: start: 20110630, end: 20110707
  8. FLUCLOXACILLIN [Concomitant]
     Indication: PRODUCT USED FOR UNKNOWN INDICATION
     Dosage: 500 MG, UNK
     Route: 065
     Dates: start: 20101101
  9. NITROFURANTOIN [Concomitant]
     Indication: PRODUCT USED FOR UNKNOWN INDICATION
     Dosage: 50 MG, DAILY
     Route: 065
     Dates: end: 20110504
  10. NITROFURANTOIN [Concomitant]
     Dosage: 50 MG, UNK
     Route: 065
     Dates: end: 20110419
  11. ERTAPENEM [Concomitant]
     Indication: PRODUCT USED FOR UNKNOWN INDICATION
     Dosage: UNK
     Route: 065
  12. TRIMETHOPRIM [Concomitant]
     Indication: PRODUCT USED FOR UNKNOWN INDICATION
     Dosage: 100 MG, QPM
     Route: 065
  13. TRIMETHOPRIM [Concomitant]
     Dosage: 200 MG, BID
     Route: 065
  14. TRIMETHOPRIM [Concomitant]
     Dosage: 200 MG, BID
     Route: 065
  15. GENTAMICIN [Concomitant]
     Indication: PRODUCT USED FOR UNKNOWN INDICATION
     Dosage: 240 MG, UNK, STAT DOSE
     Route: 065
  16. CEFALEXIN [Concomitant]
     Indication: PRODUCT USED FOR UNKNOWN INDICATION
     Dosage: 500 MG, SINGLE
     Route: 065

REACTIONS (1)
  - Clostridium difficile infection [Recovered/Resolved]
